FAERS Safety Report 15202993 (Version 1)
Quarter: 2018Q3

REPORT INFORMATION
  Report Type: Report from Study
  Country: FR (occurrence: FR)
  Receive Date: 20180726
  Receipt Date: 20180726
  Transmission Date: 20181010
  Serious: Yes (Hospitalization, Other)
  Sender: FDA-Public Use
  Company Number: FR-SA-2018SA162336

PATIENT
  Sex: Female

DRUGS (2)
  1. MTX [METHOTREXATE] [Concomitant]
  2. SARILUMAB [Suspect]
     Active Substance: SARILUMAB

REACTIONS (2)
  - Angioedema [Recovered/Resolved]
  - Hypersensitivity [Recovered/Resolved]

NARRATIVE: CASE EVENT DATE: 20180610
